FAERS Safety Report 9749395 (Version 3)
Quarter: 2014Q2

REPORT INFORMATION
  Report Type: Report from Study
  Country: CA (occurrence: CA)
  Receive Date: 20131212
  Receipt Date: 20140513
  Transmission Date: 20141212
  Serious: Yes (Other)
  Sender: FDA-Public Use
  Company Number: CA-JNJFOC-20131204447

PATIENT
  Age: 50 Year
  Sex: Female
  Weight: 66.5 kg

DRUGS (13)
  1. REMICADE [Suspect]
     Indication: COLITIS ULCERATIVE
     Route: 042
  2. SYNTHROID [Concomitant]
     Route: 048
  3. BABY ASPIRIN [Concomitant]
     Route: 048
  4. IRON INFUSIONS [Concomitant]
     Route: 042
  5. VITAMIN C [Concomitant]
     Route: 065
  6. VITAMIN D [Concomitant]
     Route: 065
  7. MAGNESIUM [Concomitant]
     Route: 065
  8. CALCIUM [Concomitant]
     Route: 065
  9. POTASSIUM SUPPLEMENT [Concomitant]
     Route: 065
  10. FOLIC ACID [Concomitant]
     Route: 065
  11. MAGNESIUM W/VITAMIN B6 [Concomitant]
     Route: 065
  12. GANODERMA LUCIDUM [Concomitant]
     Route: 065
  13. PROBIOTIC [Concomitant]
     Route: 065

REACTIONS (9)
  - Weight decreased [Unknown]
  - Rectal haemorrhage [Unknown]
  - Contrast media reaction [Unknown]
  - Haematochezia [Unknown]
  - Animal bite [Unknown]
  - Eating disorder symptom [Unknown]
  - Pain [Unknown]
  - Nausea [Unknown]
  - Abdominal symptom [Unknown]
